FAERS Safety Report 9788395 (Version 1)
Quarter: 2013Q4

REPORT INFORMATION
  Report Type: Spontaneous
  Country: US (occurrence: US)
  Receive Date: 20131230
  Receipt Date: 20131230
  Transmission Date: 20140711
  Serious: Yes (Death)
  Sender: FDA-Public Use
  Company Number: US-INCYTE CORPORATION-2013IN003098

PATIENT
  Age: 78 Year
  Sex: Male

DRUGS (1)
  1. JAKAFI [Suspect]
     Dosage: NOT SPECIFIED
     Dates: start: 20131216

REACTIONS (1)
  - Death [Fatal]
